FAERS Safety Report 7094141-0 (Version None)
Quarter: 2010Q4

REPORT INFORMATION
  Report Type: 
  Country: None (occurrence: None)
  Receive Date: 20101110
  Receipt Date: 20101108
  Transmission Date: 20110411
  Serious: Yes (Hospitalization)
  Sender: FDA-Public Use
  Company Number: DE-SANOFI-AVENTIS-2010SA067775

PATIENT
  Age: 61 Year
  Sex: Male

DRUGS (6)
  1. OXALIPLATIN [Suspect]
     Route: 041
     Dates: start: 20081229, end: 20081229
  2. OXALIPLATIN [Suspect]
     Route: 041
     Dates: start: 20090101, end: 20090101
  3. CETUXIMAB [Suspect]
     Route: 041
     Dates: start: 20081215, end: 20081215
  4. CETUXIMAB [Suspect]
     Route: 041
     Dates: start: 20090101, end: 20090101
  5. FLUOROURACIL [Suspect]
     Route: 041
     Dates: start: 20081229, end: 20081229
  6. FLUOROURACIL [Suspect]
     Route: 041
     Dates: start: 20090101, end: 20090101

REACTIONS (5)
  - CARDIAC FAILURE [None]
  - NECROSIS ISCHAEMIC [None]
  - PLEURAL EFFUSION [None]
  - PNEUMONIA [None]
  - TACHYARRHYTHMIA [None]
